FAERS Safety Report 5928433-2 (Version None)
Quarter: 2008Q4

REPORT INFORMATION
  Report Type: 
  Country: None (occurrence: None)
  Receive Date: 20081020
  Receipt Date: 20081014
  Transmission Date: 20090506
  Serious: Yes (Death, Other)
  Sender: FDA-Public Use
  Company Number: 2008SP020960

PATIENT
  Sex: Male

DRUGS (4)
  1. PEGETRON (PEGINTERFERON ALFA-2B W/RIBAVIRIN) (PEGYLATED INTERFERON ALF [Suspect]
     Indication: LICHEN PLANUS
     Dosage: SC; PO
     Route: 058
  2. PEGETRON (PEGINTERFERON ALFA-2B W/RIBAVIRIN) (PEGYLATED INTERFERON ALF [Suspect]
     Indication: OFF LABEL USE
     Dosage: SC; PO
     Route: 058
  3. PEGETRON (PEGINTERFERON ALFA-2B W/RIBAVIRIN) (PEGYLATED INTERFERON ALF [Suspect]
     Indication: LICHEN PLANUS
     Dosage: SC; PO
     Route: 058
  4. PEGETRON (PEGINTERFERON ALFA-2B W/RIBAVIRIN) (PEGYLATED INTERFERON ALF [Suspect]
     Indication: OFF LABEL USE
     Dosage: SC; PO
     Route: 058

REACTIONS (1)
  - SEPSIS [None]
